FAERS Safety Report 6270411-0 (Version None)
Quarter: 2009Q3

REPORT INFORMATION
  Report Type: 
  Country: None (occurrence: None)
  Receive Date: 20090716
  Receipt Date: 20090707
  Transmission Date: 20100115
  Serious: Yes (Hospitalization)
  Sender: FDA-Public Use
  Company Number: NL-CELGENEUS-114-50794-09070340

PATIENT
  Sex: Male
  Weight: 13.3 kg

DRUGS (3)
  1. VIDAZA [Suspect]
     Route: 058
  2. BROXIL [Concomitant]
     Indication: ASPLENIA
     Route: 065
  3. COTRIM [Concomitant]
     Route: 065

REACTIONS (3)
  - FATIGUE [None]
  - HYPERBILIRUBINAEMIA [None]
  - PYREXIA [None]
